FAERS Safety Report 5626532-6 (Version None)
Quarter: 2008Q1

REPORT INFORMATION
  Report Type: 
  Country: None (occurrence: None)
  Receive Date: 20080214
  Receipt Date: 20080206
  Transmission Date: 20080703
  Serious: Yes (Life-Threatening, Hospitalization)
  Sender: FDA-Public Use
  Company Number: FR-WYE-G01013108

PATIENT
  Sex: Female

DRUGS (4)
  1. ADVIL [Suspect]
     Indication: PYREXIA
     Dosage: UNKNOWN
     Route: 048
     Dates: start: 20071218, end: 20071227
  2. AMOXICILLIN [Concomitant]
     Indication: EAR INFECTION
     Dosage: 150 MG PER KILOGRAM
     Route: 048
     Dates: start: 20071218, end: 20071201
  3. PREVENAR [Concomitant]
     Indication: IMMUNISATION
     Dosage: UNSPECIFIED
     Dates: start: 20070101, end: 20070101
  4. ACETAMINOPHEN [Concomitant]
     Indication: PYREXIA
     Dosage: UNKNOWN
     Route: 048
     Dates: start: 20071218, end: 20071227

REACTIONS (6)
  - C-REACTIVE PROTEIN INCREASED [None]
  - CONDITION AGGRAVATED [None]
  - MENINGITIS PNEUMOCOCCAL [None]
  - PLATELET COUNT INCREASED [None]
  - PYREXIA [None]
  - WHITE BLOOD CELL COUNT INCREASED [None]
